FAERS Safety Report 22615238 (Version 1)
Quarter: 2023Q2

REPORT INFORMATION
  Report Type: Spontaneous
  Country: TH (occurrence: None)
  Receive Date: 20230619
  Receipt Date: 20230619
  Transmission Date: 20230722
  Serious: Yes (Other)
  Sender: FDA-Public Use
  Company Number: TH-ROCHE-3367525

PATIENT
  Age: 51 Year
  Sex: Female

DRUGS (2)
  1. PERJETA [Suspect]
     Active Substance: PERTUZUMAB
     Indication: Breast cancer metastatic
     Route: 065
  2. TRASTUZUMAB [Suspect]
     Active Substance: TRASTUZUMAB
     Indication: Breast cancer metastatic
     Route: 065

REACTIONS (5)
  - Metastases to lymph nodes [Unknown]
  - Metastases to bone [Unknown]
  - Metastases to heart [Unknown]
  - Metastases to pleura [Unknown]
  - Therapeutic product effect incomplete [Unknown]
